FAERS Safety Report 18349406 (Version 3)
Quarter: 2020Q4

REPORT INFORMATION
  Report Type: Spontaneous
  Country: DE (occurrence: DE)
  Receive Date: 20201006
  Receipt Date: 20201116
  Transmission Date: 20210114
  Serious: Yes (Death)
  Sender: FDA-Public Use
  Company Number: DE-MDD US OPERATIONS-E2B_00003530

PATIENT
  Age: 74 Year
  Sex: Male
  Weight: 93.9 kg

DRUGS (5)
  1. MADOPAR DEPOT CONTROLLED RELEASE [Concomitant]
     Indication: PARKINSON^S DISEASE
     Dates: start: 2017, end: 20190825
  2. XADAGO [Suspect]
     Active Substance: SAFINAMIDE MESYLATE
     Indication: PARKINSON^S DISEASE
     Route: 048
     Dates: start: 20190729, end: 20190825
  3. MADOPAR LT [Concomitant]
     Active Substance: BENSERAZIDE HYDROCHLORIDE\LEVODOPA
     Indication: PARKINSON^S DISEASE
     Dates: start: 2017, end: 20190825
  4. SIFROL [Concomitant]
     Active Substance: PRAMIPEXOLE
     Indication: PARKINSON^S DISEASE
     Dosage: NOT PROVIDED
     Dates: start: 2006, end: 20190825
  5. CARBIDOPA, LEVODOPA AND ENTACAPONE [Concomitant]
     Active Substance: CARBIDOPA\ENTACAPONE\LEVODOPA
     Indication: PARKINSON^S DISEASE
     Dates: start: 2016, end: 20190825

REACTIONS (1)
  - Sudden cardiac death [Fatal]

NARRATIVE: CASE EVENT DATE: 20190825
